FAERS Safety Report 8381264-9 (Version None)
Quarter: 2012Q2

REPORT INFORMATION
  Report Type: 
  Country: None (occurrence: None)
  Receive Date: 20120523
  Receipt Date: 20120514
  Transmission Date: 20120825
  Serious: Yes (Death, Life-Threatening, Hospitalization, Other)
  Sender: FDA-Public Use
  Company Number: US-MYLANLABS-2008AL009849

PATIENT
  Age: 68 Year
  Sex: Male
  Weight: 74.84 kg

DRUGS (5)
  1. DIGOXIN [Suspect]
     Indication: SUPRAVENTRICULAR TACHYCARDIA
     Route: 048
     Dates: start: 20051005
  2. COUMADIN [Concomitant]
  3. TOBRADEX [Concomitant]
  4. VIOXX [Concomitant]
  5. AMOXICILLIN [Concomitant]

REACTIONS (18)
  - ILL-DEFINED DISORDER [None]
  - ATRIAL TACHYCARDIA [None]
  - DIZZINESS [None]
  - VENTRICULAR EXTRASYSTOLES [None]
  - ASTHENIA [None]
  - CIRCULATORY COLLAPSE [None]
  - DEATH [None]
  - ECONOMIC PROBLEM [None]
  - CHRONIC OBSTRUCTIVE PULMONARY DISEASE [None]
  - HYPERLIPIDAEMIA [None]
  - SUPRAVENTRICULAR EXTRASYSTOLES [None]
  - INFLUENZA LIKE ILLNESS [None]
  - INJURY [None]
  - ECHOCARDIOGRAM ABNORMAL [None]
  - SUPRAVENTRICULAR TACHYCARDIA [None]
  - ARRHYTHMIA [None]
  - NAUSEA [None]
  - DECREASED APPETITE [None]
